FAERS Safety Report 9720127 (Version 2)
Quarter: 2014Q2

REPORT INFORMATION
  Report Type: Spontaneous
  Country: SI (occurrence: SI)
  Receive Date: 20131128
  Receipt Date: 20140502
  Transmission Date: 20141212
  Serious: Yes (Life-Threatening)
  Sender: FDA-Public Use
  Company Number: SI-ROCHE-1310685

PATIENT
  Age: 54 Year
  Sex: Male

DRUGS (8)
  1. AVASTIN [Suspect]
     Indication: COLORECTAL CANCER METASTATIC
     Route: 042
     Dates: start: 20131108, end: 20140410
  2. OXALIPLATINO TEVA [Suspect]
     Indication: COLORECTAL CANCER METASTATIC
     Route: 042
     Dates: start: 20131108, end: 20140410
  3. APAURIN [Concomitant]
     Indication: PREMEDICATION
     Route: 065
  4. KYTRIL [Concomitant]
     Indication: PREMEDICATION
     Route: 065
  5. NOLPAZA [Concomitant]
     Route: 065
  6. AMLOPIN [Concomitant]
     Route: 065
  7. LEXAURIN [Concomitant]
     Route: 065
  8. DEXAMETHASONE [Concomitant]
     Indication: PREMEDICATION

REACTIONS (2)
  - Hepatorenal syndrome [Recovering/Resolving]
  - Multi-organ failure [Recovering/Resolving]
